FAERS Safety Report 10302842 (Version 1)
Quarter: 2014Q3

REPORT INFORMATION
  Report Type: Spontaneous
  Country: US (occurrence: US)
  Receive Date: 20140714
  Receipt Date: 20140714
  Transmission Date: 20150326
  Serious: Yes (Hospitalization)
  Sender: FDA-Public Use
  Company Number: US-MYLANLABS-2014S1016142

PATIENT
  Sex: Male

DRUGS (2)
  1. CLOZAPINE TABLETS [Suspect]
     Active Substance: CLOZAPINE
     Route: 048
  2. CLOZAPINE TABLETS [Suspect]
     Active Substance: CLOZAPINE
     Route: 048

REACTIONS (1)
  - Psychiatric symptom [Recovered/Resolved]
